FAERS Safety Report 9646276 (Version 6)
Quarter: 2013Q4

REPORT INFORMATION
  Report Type: Report from Study
  Country: AU (occurrence: AU)
  Receive Date: 20131025
  Receipt Date: 20131119
  Transmission Date: 20140711
  Serious: Yes (Hospitalization, Other)
  Sender: FDA-Public Use
  Company Number: PHHY2010AU73415

PATIENT
  Age: 40 Year
  Sex: Male
  Weight: 94.6 kg

DRUGS (161)
  1. CLOZARIL [Suspect]
     Indication: SCHIZOPHRENIA
     Dosage: 12.5 MG
     Route: 048
     Dates: start: 19990603, end: 20130910
  2. CLOZARIL [Interacting]
     Dosage: UNK
     Dates: start: 20130913, end: 20130916
  3. CLOZARIL [Interacting]
     Dosage: 425 MG
     Dates: end: 201310
  4. QUETIAPINE [Suspect]
     Dosage: UNK UKN, UNK
  5. QUETIAPINE [Suspect]
     Dosage: 50 MG, PRN
  6. QUETIAPINE [Suspect]
     Dosage: 100 MG, PRN
  7. QUETIAPINE [Suspect]
     Dosage: UNK UKN, UNK
     Dates: start: 201305, end: 20130911
  8. QUETIAPINE [Suspect]
     Dosage: MG BETWEEN 150-300 MG DAILY
     Dates: start: 20130918, end: 20130924
  9. QUETIAPINE [Suspect]
     Dosage: UNK
     Dates: start: 201306
  10. EPILIM [Suspect]
     Indication: CLONIC CONVULSION
     Dosage: 1 DF, BID
     Dates: start: 20100610
  11. EPILIM [Suspect]
     Dosage: 1 DF, BID
     Dates: start: 20100730
  12. EPILIM [Suspect]
     Dosage: 1 DF, BID
     Dates: start: 20100825
  13. EPILIM [Suspect]
     Dosage: 1 DF, BID
     Dates: start: 20101210
  14. EPILIM [Suspect]
     Dosage: 1 DF, BID
     Dates: start: 20100825
  15. EPILIM [Suspect]
     Dosage: 1 DF, BID
     Dates: start: 20110415
  16. EPILIM [Suspect]
     Dosage: UNK
  17. WARFARIN [Suspect]
     Dosage: UNK UKN, UNK
  18. TEMAZEPAM [Concomitant]
     Indication: PNEUMONIA
     Dosage: 10 MG, QD
  19. TEMAZEPAM [Concomitant]
     Dosage: 20 MG, PRN
     Route: 048
  20. BENZTROPINE MESYLATE [Concomitant]
     Dosage: 2 MG, QD
  21. EFFEXOR [Concomitant]
     Dosage: 375 MG, QD
  22. SEROQUEL [Concomitant]
     Dosage: UNK UKN, UNK
  23. BENZTROPINE [Concomitant]
     Indication: EXTRAPYRAMIDAL DISORDER
     Dosage: 1 MG, PRN
  24. BENZTROPINE [Concomitant]
     Dosage: 2 MG, PRN
  25. HALOPERIDOL [Concomitant]
     Dosage: UNK, 5 MG NOCTE AND 2.5 MG BD PRN
  26. ARIPIPRAZOLE [Concomitant]
     Dosage: 15 MG, MANE
  27. ARIPIPRAZOLE [Concomitant]
     Dosage: 300 MG, MANE
  28. PANADEINE [Concomitant]
     Dosage: 12 MG, NOCTE
  29. PANADEINE [Concomitant]
     Dosage: 12 MG, QID
  30. PANADEINE [Concomitant]
     Dosage: 2 DF, QID
     Dates: start: 20120221
  31. ASPIRIN [Concomitant]
     Dosage: UNK
     Route: 048
  32. ASPIRIN [Concomitant]
     Dosage: UNK
  33. PALIPERIDONE [Concomitant]
     Dosage: 12 MG, NOCTE
  34. ENDONE [Concomitant]
     Dosage: 2.5 MG, UNK
     Route: 048
  35. ENDONE [Concomitant]
     Dosage: 5 MG, PRN
     Route: 048
  36. CARDIA [Concomitant]
  37. VITAMIN B12 [Concomitant]
     Dosage: 1 ML, UNK
     Route: 030
  38. VENLAFAXINE [Concomitant]
     Dosage: UNK UKN, UNK
     Dates: start: 2011
  39. VENLAFAXINE [Concomitant]
     Dosage: 450 MG, NOCTE WITH FOOD
  40. VENLAFAXINE [Concomitant]
     Dosage: UNK UKN, UNK
     Dates: start: 20130424
  41. BENZHEXOL [Concomitant]
     Dosage: 2 MG, UNK
     Route: 048
  42. DIAZEPAM [Concomitant]
     Dosage: 5 MG, PRN
     Route: 048
  43. DIAZEPAM [Concomitant]
     Dosage: 10 MG, PRN
     Route: 048
  44. IBUPROFEN [Concomitant]
     Indication: PAIN
     Dosage: 400 MG, TID
     Route: 048
  45. COGENTIN [Concomitant]
     Dosage: HALF TABLET, BID
     Dates: start: 20000221
  46. COGENTIN [Concomitant]
     Dosage: HALF TABLET, BID
     Dates: start: 20001002
  47. ARTANE [Concomitant]
     Dosage: 2 DF, NOCTE
     Dates: start: 20020613
  48. ARTANE [Concomitant]
     Dosage: 1 DF, NOCTE
     Dates: start: 20070719
  49. ARTANE [Concomitant]
     Dosage: 1 DF, NOCTE
     Dates: start: 20100629
  50. PANAMAX [Concomitant]
     Dosage: 2 DF, QID AS NEEDED
     Dates: start: 20020808
  51. AUGMENTIN DUO FORTE [Concomitant]
     Dosage: 1 DF, BID
     Dates: start: 20020808
  52. AUGMENTIN DUO FORTE [Concomitant]
     Dosage: 2 DF, QID AS NEEDED
     Dates: start: 20041202
  53. AUGMENTIN DUO FORTE [Concomitant]
     Dosage: 2 DF, QID AS NEEDED
     Dates: start: 20050219
  54. PANADEINE FORTE [Concomitant]
     Dosage: 2 DF, QID
     Dates: start: 20041202
  55. PANADEINE FORTE [Concomitant]
     Dosage: 1-2 DF, QID
     Dates: start: 20070713
  56. PANADEINE FORTE [Concomitant]
     Dosage: 1-2 DF, QID
     Dates: start: 20070716
  57. PANADEINE FORTE [Concomitant]
     Dosage: 1-2 DF, QID
     Dates: start: 20070719
  58. PANADEINE FORTE [Concomitant]
     Dosage: 2 DF (NOCTE), PRN
     Dates: start: 20080320
  59. PANADEINE FORTE [Concomitant]
     Dosage: 2 DF (NOCTE), PRN
     Dates: start: 20080407
  60. PANADEINE FORTE [Concomitant]
     Dosage: 2 DF (NOCTE), PRN
     Dates: start: 20080410
  61. PANADEINE FORTE [Concomitant]
     Dosage: 2 DF (NOCTE), PRN
     Dates: start: 20080417
  62. PANADEINE FORTE [Concomitant]
     Dosage: 2 DF (NOCTE), PRN
     Dates: start: 20080424
  63. PANADEINE FORTE [Concomitant]
     Dosage: 2 DF, TID AS NEEDED
     Dates: start: 20080428
  64. PANADEINE FORTE [Concomitant]
     Dosage: 2 DF, TID AS NEEDED
     Dates: start: 20080502
  65. PANADEINE FORTE [Concomitant]
     Dosage: 2 DF, TID AS NEEDED
     Dates: start: 20080506
  66. PANADEINE FORTE [Concomitant]
     Dosage: 2 DF, TID AS NEEDED
     Dates: start: 20080702
  67. PANADEINE FORTE [Concomitant]
     Dosage: 2 DF, TID AS NEEDED
     Dates: start: 20080805
  68. PANADEINE FORTE [Concomitant]
     Dosage: 1-2 DF, TID AS NEEDED
     Dates: start: 20080814
  69. PANADEINE FORTE [Concomitant]
     Dosage: 1-2 DF, TID AS NEEDED
     Dates: start: 20100302
  70. PANADEINE FORTE [Concomitant]
     Dosage: 2 DF, TID AS NEEDED
     Dates: start: 20100315
  71. PANADEINE FORTE [Concomitant]
     Dosage: 2 DF, QID AS NEEDED
     Dates: start: 20101116
  72. PANADEINE FORTE [Concomitant]
     Dosage: 2 DF, QID AS NEEDED
     Dates: start: 20101118
  73. PANADEINE FORTE [Concomitant]
     Dosage: 2 DF, QID AS NEEDED
     Dates: start: 20101122
  74. PANADEINE FORTE [Concomitant]
     Dosage: 2 DF, QID AS NEEDED
     Dates: start: 20101125
  75. PANADEINE FORTE [Concomitant]
     Dosage: 2 DF, QID AS NEEDED
     Dates: start: 20110517
  76. PANADEINE FORTE [Concomitant]
     Dosage: 2 DF, QID AS NEEDED
     Dates: start: 20110706
  77. PANADEINE FORTE [Concomitant]
     Dosage: 2 DF, QID AS NEEDED
     Dates: start: 20120221
  78. PANADEINE FORTE [Concomitant]
     Dosage: 2 DF, QID AS NEEDED
     Dates: start: 20120423
  79. PANADEINE FORTE [Concomitant]
     Dosage: 2 DF, Q6H AS NEEDED
     Dates: start: 20121008
  80. PANADEINE FORTE [Concomitant]
     Dosage: 2 DF, Q6H AS NEEDED
     Dates: start: 20121025
  81. PANADEINE FORTE [Concomitant]
     Dosage: 2 DF, Q6H AS NEEDED
     Dates: start: 20121112
  82. PANADEINE FORTE [Concomitant]
     Dosage: 2 DF, Q6H AS NEEDED
     Dates: start: 20121224
  83. PANADEINE FORTE [Concomitant]
     Dosage: 2 DF, Q6H AS NEEDED
     Dates: start: 20130225
  84. PANADEINE FORTE [Concomitant]
     Dosage: 2 DF, QID AS NEEDED
     Dates: start: 20130722
  85. PANADEINE FORTE [Concomitant]
     Dosage: 2 DF, QID AS NEEDED
     Dates: start: 20131003
  86. CEFTRIAXONE [Concomitant]
     Dosage: 1 DF, DAILY
     Dates: start: 20041213
  87. VALIUM [Concomitant]
     Dosage: 1 DF, TID
     Dates: start: 20050219
  88. VALIUM [Concomitant]
     Dosage: 5 MG, TID
     Dates: start: 20070620
  89. VALIUM [Concomitant]
     Dosage: 5 MG, TID
     Dates: start: 20070703
  90. VALIUM [Concomitant]
     Dosage: 5 MG, TID
     Dates: start: 20070719
  91. VALIUM [Concomitant]
     Dosage: 5 MG, TID
     Dates: start: 20070811
  92. VALIUM [Concomitant]
     Dosage: 5 MG, TID
     Dates: start: 20070827
  93. VALIUM [Concomitant]
     Dosage: 2 MG, BID AS NEEDED
     Dates: start: 20131009
  94. CIPRAMIL [Concomitant]
     Dosage: 2 DF, MANE
     Dates: start: 20050219
  95. CIPRAMIL [Concomitant]
     Dosage: 3 DF, MANE
     Dates: start: 20051212
  96. CIPRAMIL [Concomitant]
     Dosage: 3 DF, MANE
     Dates: start: 20060711
  97. AMOXIL//AMOXICILLIN [Concomitant]
     Dosage: 1 DF, TID
     Dates: start: 20050912
  98. AMOXIL//AMOXICILLIN [Concomitant]
     Dosage: 1 DF, TID
     Dates: start: 20061002
  99. AMOXIL//AMOXICILLIN [Concomitant]
     Dosage: 1 DF, TID
     Dates: start: 20090630
  100. AMOXIL//AMOXICILLIN [Concomitant]
     Dosage: 1 DF, TID
     Dates: start: 20091012
  101. TRIPRIM [Concomitant]
     Dosage: 1 DF, DAILY M.D.U
     Dates: start: 20060614
  102. NOROXIN [Concomitant]
     Dosage: 1 DF, BID M.D.U
     Dates: start: 20060619
  103. VOLTAREN EMULGEL [Concomitant]
     Dosage: UNK, DAILY M.D.U
     Route: 061
     Dates: start: 20060803
  104. CELEBREX [Concomitant]
     Dosage: 1 DF, BID (AFTER MEALS)
     Dates: start: 20060803
  105. DITROPAN [Concomitant]
     Dosage: 2 DF, NOCTE
     Dates: start: 20070129
  106. DITROPAN [Concomitant]
     Dosage: 2 DF, NOCTE
     Dates: start: 20071130
  107. DITROPAN [Concomitant]
     Dosage: 2 DF, NOCTE
     Dates: start: 20080424
  108. DITROPAN [Concomitant]
     Dosage: 2 DF, NOCTE
     Dates: start: 20091005
  109. DITROPAN [Concomitant]
     Dosage: 2 DF, NOCTE
     Dates: start: 20101210
  110. DITROPAN [Concomitant]
     Dosage: 1 DF, NOCTE
     Dates: start: 20120402
  111. KEFLEX//CEFALEXIN MONOHYDRATE [Concomitant]
     Indication: INFECTION
     Dosage: 1 DF, QID
     Dates: start: 20070430
  112. KEFLEX//CEFALEXIN MONOHYDRATE [Concomitant]
     Indication: SKIN ULCER
     Dosage: 1 DF, QID
     Dates: start: 20070620
  113. KEFLEX//CEFALEXIN MONOHYDRATE [Concomitant]
     Dosage: 2 DF, BID A.O.
     Dates: start: 20080407
  114. KEFLEX//CEFALEXIN MONOHYDRATE [Concomitant]
     Dosage: 1 DF, QID
     Dates: start: 20080502
  115. KEFLEX//CEFALEXIN MONOHYDRATE [Concomitant]
     Dosage: 1 DF, QID
     Dates: start: 20081125
  116. KEFLEX//CEFALEXIN MONOHYDRATE [Concomitant]
     Dosage: 2 DF, BID A.O.
     Dates: start: 20100119
  117. KEFLEX//CEFALEXIN MONOHYDRATE [Concomitant]
     Dosage: 2 DF, BID
     Dates: start: 20100220
  118. KEFLEX//CEFALEXIN MONOHYDRATE [Concomitant]
     Dosage: 2 DF, BID
     Dates: start: 20100309
  119. KEFLEX//CEFALEXIN MONOHYDRATE [Concomitant]
     Dosage: 2 DF, BID
     Dates: start: 20100315
  120. KEFLEX//CEFALEXIN MONOHYDRATE [Concomitant]
     Dosage: 2 DF, BID
     Dates: start: 20100810
  121. KEFLEX//CEFALEXIN MONOHYDRATE [Concomitant]
     Dosage: 2 DF, BID
     Dates: start: 20110706
  122. KEFLEX//CEFALEXIN MONOHYDRATE [Concomitant]
     Dosage: 2 DF, BID
     Dates: start: 20120221
  123. KEFLEX//CEFALEXIN MONOHYDRATE [Concomitant]
     Dosage: 2 DF, BID
     Dates: start: 20121008
  124. KEFLEX//CEFALEXIN MONOHYDRATE [Concomitant]
     Dosage: 2 DF, BID
     Dates: start: 20130318
  125. KEFLEX//CEFALEXIN MONOHYDRATE [Concomitant]
     Dosage: 2 DF, BID
     Dates: start: 20130718
  126. KEFLEX//CEFALEXIN MONOHYDRATE [Concomitant]
     Dosage: 2 DF, BID
     Dates: start: 20130726
  127. KEFLEX//CEFALEXIN MONOHYDRATE [Concomitant]
     Dosage: 2 DF, BID
     Dates: start: 20130729
  128. DORYX [Concomitant]
     Dosage: 1 DF, DAILY
     Dates: start: 20070528
  129. SIGMACORT [Concomitant]
     Dosage: APPLY AFTER WASHING FACE
     Dates: start: 20070626
  130. CILAMOX [Concomitant]
     Dosage: 1 DF, TID
     Dates: start: 20070911
  131. VOLTAREN//DICLOFENAC [Concomitant]
     Dosage: 1 DF, TID (AFTER MEALS)
     Dates: start: 20071227
  132. VIBRAMYCIN [Concomitant]
     Dosage: 2 DF AT STAT 1 DF DAILY TO CONTINUE
     Dates: start: 20080206
  133. RHINOCORT//BUDESONIDE [Concomitant]
     Dosage: 1 DF (64 UG PER DOSE), BOTH SIDES
     Dates: start: 20080215
  134. SANDOMIGRAN [Concomitant]
     Dosage: 1 DF, MANE M.D.U
     Dates: start: 20080304
  135. HYDROZOLE [Concomitant]
     Dosage: UNK, BID
     Route: 061
     Dates: start: 20080304
  136. HYDROZOLE [Concomitant]
     Dosage: UNK, BID
     Route: 061
     Dates: start: 20080320
  137. NEMDYN [Concomitant]
     Dosage: 3.5MG-400UL, BID
     Route: 061
     Dates: start: 20080320
  138. MAXOLON [Concomitant]
     Dosage: 1 DF, TID
     Dates: start: 20080804
  139. EFEXOR XR [Concomitant]
     Dosage: 150 MG, BID (MANE)
     Dates: start: 20081208
  140. EFEXOR XR [Concomitant]
     Dosage: 75 MG, QD (MANE)
     Dates: start: 20081208
  141. EFEXOR XR [Concomitant]
     Dosage: 75 MG, QD (5 MANE)
     Dates: start: 20110415
  142. EFEXOR XR [Concomitant]
     Dosage: 75 MG, QD (5 MANE)
     Dates: start: 20110706
  143. EFEXOR XR [Concomitant]
     Dosage: 150 MG, TID (MANE)
     Dates: start: 20120607
  144. EFEXOR XR [Concomitant]
     Dosage: 150 MG, TID (MANE)
     Dates: start: 20130225
  145. EFEXOR XR [Concomitant]
     Dosage: 150 MG, TID (MANE)
     Dates: start: 20130424
  146. STAPHYLEX [Concomitant]
     Dosage: 1 DF, QID AS NEEDED
     Dates: start: 20100326
  147. CRESTOR [Concomitant]
     Indication: BLOOD CHOLESTEROL
     Dosage: 1 DF, NOCTE
     Dates: start: 20100810
  148. CRESTOR [Concomitant]
     Dosage: 1 DF, NOCTE
     Dates: start: 20110323
  149. CRESTOR [Concomitant]
     Dosage: 1 DF, NOCTE
     Dates: start: 20120913
  150. DALACIN C//CLINDAMYCIN [Concomitant]
     Dosage: 1 DF, QID
     Dates: start: 20101025
  151. DALACIN C//CLINDAMYCIN [Concomitant]
     Dosage: 1 DF, QID
     Dates: start: 20110312
  152. MOVICOL [Concomitant]
     Dosage: 13.125 G, 1 SACHET DAILY DISSOLEVED IN 125 ML
     Dates: start: 20111026
  153. MOVICOL [Concomitant]
     Dosage: 13.125 G, 1 SACHET DAILY DISSOLEVED IN 125 ML
     Dates: start: 20120913
  154. OSTELIN VITAMIN D [Concomitant]
     Dosage: 3 DF, DAILY FOR 1/12 THEN 1 DAILY
     Dates: start: 20120913
  155. VALPROATE WINTHROP [Concomitant]
     Dosage: UNK UKN, UNK
     Dates: start: 2010
  156. VALPROATE WINTHROP [Concomitant]
     Dosage: 2 DF, BID
     Dates: start: 20121004
  157. VALPROATE WINTHROP [Concomitant]
     Dosage: UNK UKN, UNK
     Dates: start: 201308
  158. DICLOCIL [Concomitant]
     Dosage: 1 DF, QID
     Dates: start: 20121015
  159. ABILIFY [Concomitant]
     Dosage: 1 DF, MANE
     Dates: start: 20131003
  160. INVEGA (PALIPERIDONE) [Concomitant]
     Dosage: 2 DF, NOCTE
     Dates: start: 20131003
  161. SERENACE [Concomitant]
     Dosage: 1 DF, NOCTE 1/2 BID IF REQUIRED
     Dates: start: 20131003

REACTIONS (26)
  - Squamous cell carcinoma [Unknown]
  - Wound [Unknown]
  - Judgement impaired [Unknown]
  - Decreased appetite [Unknown]
  - Impaired self-care [Unknown]
  - Poor quality sleep [Unknown]
  - Musculoskeletal stiffness [Unknown]
  - Suicide attempt [Unknown]
  - Suicidal ideation [Unknown]
  - Depressed mood [Unknown]
  - Hallucination, auditory [Unknown]
  - Paranoia [Unknown]
  - Extrapyramidal disorder [Unknown]
  - Sedation [Unknown]
  - Confusional state [Unknown]
  - Cellulitis [Unknown]
  - Deep vein thrombosis [Unknown]
  - Grand mal convulsion [Unknown]
  - Neutropenia [Recovered/Resolved]
  - Agranulocytosis [Unknown]
  - Drug interaction [Unknown]
  - Vitamin B12 deficiency [Unknown]
  - Abnormal behaviour [Unknown]
  - White blood cell count decreased [Recovered/Resolved]
  - Monocyte count decreased [Unknown]
  - Dyslipidaemia [Unknown]
